FAERS Safety Report 7574505-9 (Version None)
Quarter: 2011Q2

REPORT INFORMATION
  Report Type: 
  Country: None (occurrence: None)
  Receive Date: 20110627
  Receipt Date: 20081214
  Transmission Date: 20111010
  Serious: Yes (Other)
  Sender: FDA-Public Use
  Company Number: US-BAYER-200840655NA

PATIENT
  Age: 47 Year
  Sex: Male
  Weight: 77.551 kg

DRUGS (19)
  1. BUMEX [Concomitant]
     Dosage: 2 MG, UNK
     Route: 042
     Dates: start: 20070326, end: 20070401
  2. VASOPRESSIN [Concomitant]
     Dosage: 2 MG/MIN
     Route: 042
     Dates: start: 20070401, end: 20070401
  3. FACTOR VII [Concomitant]
     Dosage: 7.2 MG, UNK
     Route: 042
     Dates: start: 20070401, end: 20070401
  4. EPINEPHRINE [Concomitant]
     Dosage: 0.06 MG/KG/MIN
     Dates: start: 20070401, end: 20070401
  5. ROCURONIUM BROMIDE [Concomitant]
     Dosage: 100 MG, UNK
     Route: 042
     Dates: start: 20070401, end: 20070401
  6. LEVAQUIN [Concomitant]
     Dosage: 250 MG, ONCE
     Route: 042
     Dates: start: 20070321, end: 20070324
  7. COREG [Concomitant]
     Dosage: 5.125 MG, UNK
     Route: 048
  8. ISOFLURANE [Concomitant]
     Dosage: 0.6 MG/MIN
     Route: 042
     Dates: start: 20070401, end: 20070401
  9. MILRINONE [Concomitant]
     Dosage: 0.7 MG/MIN
     Route: 042
     Dates: start: 20070401, end: 20070401
  10. HEPARIN [Concomitant]
     Dosage: 5000 U, BID
     Route: 058
     Dates: start: 20070326, end: 20070401
  11. TRASYLOL [Suspect]
     Dosage: 50 ML/HR
     Route: 042
     Dates: start: 20070402, end: 20070402
  12. LASIX [Concomitant]
     Dosage: 40 MG, UNK
     Route: 048
  13. FENTANYL [Concomitant]
     Dosage: 500 MCG
     Route: 042
     Dates: start: 20070401, end: 20070401
  14. VERSED [Concomitant]
     Dosage: 10 MG, UNK
     Route: 042
     Dates: start: 20070401, end: 20070401
  15. HEPARIN [Concomitant]
     Dosage: 28 ML, UNK
     Route: 042
     Dates: start: 20070401, end: 20070401
  16. LISINOPRIL [Concomitant]
     Dosage: 5 MG, UNK
     Route: 048
  17. TRASYLOL [Suspect]
     Indication: MITRAL VALVE REPLACEMENT
     Dosage: 1 ML INITIAL TEST DOSE
     Route: 042
     Dates: start: 20070402, end: 20070402
  18. TRASYLOL [Suspect]
     Dosage: 200 ML PUMP PRIME DOSE OVER 30 MINUTES
     Route: 042
     Dates: start: 20070402, end: 20070402
  19. NORCURON [Concomitant]
     Dosage: 0.2 MG/MINUTE
     Route: 042
     Dates: start: 20070401, end: 20070401

REACTIONS (10)
  - RENAL FAILURE [None]
  - INJURY [None]
  - EMOTIONAL DISTRESS [None]
  - ANXIETY [None]
  - ANHEDONIA [None]
  - FEAR [None]
  - STRESS [None]
  - UNEVALUABLE EVENT [None]
  - MULTI-ORGAN FAILURE [None]
  - PAIN [None]
